FAERS Safety Report 4616091-9 (Version None)
Quarter: 2005Q1

REPORT INFORMATION
  Report Type: 
  Country: None (occurrence: None)
  Receive Date: 20050317
  Receipt Date: 20050302
  Transmission Date: 20050727
  Serious: Yes (Hospitalization)
  Sender: FDA-Public Use
  Company Number: 2005-DE-00845GD

PATIENT
  Age: 56 Year
  Sex: Male

DRUGS (4)
  1. TRIMETHOPRIM + SULFAMETHOXAZOLE [Suspect]
     Indication: INFECTION PROPHYLAXIS
     Dosage: (ONCE/DAY), PO
     Route: 048
  2. AZATHIOPRINE [Suspect]
     Indication: WEGENER'S GRANULOMATOSIS
  3. ETANERCEPT (ETANERCEPT) [Suspect]
     Indication: WEGENER'S GRANULOMATOSIS
     Dosage: 25 MG (, TWICE WEEKLY),
  4. LISINOPRIL [Suspect]
     Dosage: 10 MG

REACTIONS (34)
  - ACUTE PRERENAL FAILURE [None]
  - BETA HAEMOLYTIC STREPTOCOCCAL INFECTION [None]
  - BLOOD CREATINE PHOSPHOKINASE INCREASED [None]
  - BLOOD CREATINE PHOSPHOKINASE MB INCREASED [None]
  - BLOOD SODIUM DECREASED [None]
  - CARDIAC FAILURE CONGESTIVE [None]
  - CONDITION AGGRAVATED [None]
  - DEHYDRATION [None]
  - DIARRHOEA [None]
  - EJECTION FRACTION DECREASED [None]
  - EPISCLERITIS [None]
  - HEPATIC NECROSIS [None]
  - HEPATITIS [None]
  - HUMAN EHRLICHIOSIS [None]
  - IMMUNOSUPPRESSION [None]
  - INFECTION [None]
  - INFECTION IN AN IMMUNOCOMPROMISED HOST [None]
  - MALAISE [None]
  - MYOCARDITIS [None]
  - PLATELET COUNT DECREASED [None]
  - POST STREPTOCOCCAL GLOMERULONEPHRITIS [None]
  - PROTEIN URINE [None]
  - PULMONARY CONGESTION [None]
  - PYREXIA [None]
  - RASH MACULAR [None]
  - RENAL FAILURE ACUTE [None]
  - RESPIRATORY DISTRESS [None]
  - SCAB [None]
  - SINUS CONGESTION [None]
  - THROMBOCYTOPENIA [None]
  - TROPONIN I INCREASED [None]
  - VENTRICULAR DYSFUNCTION [None]
  - WEGENER'S GRANULOMATOSIS [None]
  - WHITE BLOOD CELLS URINE [None]
